FAERS Safety Report 20430695 (Version 1)
Quarter: 2022Q1

REPORT INFORMATION
  Report Type: Report from Study
  Country: FR (occurrence: FR)
  Receive Date: 20220204
  Receipt Date: 20220204
  Transmission Date: 20220423
  Serious: Yes (Hospitalization)
  Sender: FDA-Public Use
  Company Number: FR-SERVIER-S21002599

PATIENT

DRUGS (10)
  1. PEGASPARGASE [Suspect]
     Active Substance: PEGASPARGASE
     Indication: Acute lymphocytic leukaemia
     Dosage: 735 IU, QD, D12, D26
     Route: 042
     Dates: start: 20210129, end: 20210212
  2. VINCRISTINE [Suspect]
     Active Substance: VINCRISTINE
     Indication: Acute lymphocytic leukaemia
     Dosage: 0.9 MG, D8, D15, D22, D29
     Route: 042
     Dates: start: 20210125, end: 20210218
  3. DAUNORUBICIN [Suspect]
     Active Substance: DAUNORUBICIN
     Indication: Acute lymphocytic leukaemia
     Dosage: 18 MG, D8, D15, D22, D29
     Route: 042
     Dates: start: 20210125, end: 20210214
  4. PREDNISOLONE [Suspect]
     Active Substance: PREDNISOLONE
     Indication: Acute lymphocytic leukaemia
     Dosage: 35 MG, D1 TO D8
     Route: 048
     Dates: start: 20210118, end: 20210214
  5. PREDNISOLONE [Suspect]
     Active Substance: PREDNISOLONE
     Dosage: 15 MG
     Route: 048
     Dates: start: 20210215, end: 20210216
  6. PREDNISOLONE [Suspect]
     Active Substance: PREDNISOLONE
     Dosage: 10 MG
     Route: 048
     Dates: start: 20210217, end: 20210218
  7. PREDNISOLONE [Suspect]
     Active Substance: PREDNISOLONE
     Dosage: 5 MG
     Route: 048
     Dates: start: 20210219, end: 20210220
  8. TN UNSPECIFIED [Concomitant]
     Indication: Acute lymphocytic leukaemia
     Dosage: 8 MG, D1, D9, D12, D18, D24
     Route: 037
     Dates: start: 20210118, end: 20210212
  9. TN UNSPECIFIED [Concomitant]
     Indication: Acute lymphocytic leukaemia
     Dosage: 20 MG, D9, D12, D18, D24
     Route: 037
     Dates: start: 20210126, end: 20210212
  10. TN UNSPECIFIED [Concomitant]
     Indication: Acute lymphocytic leukaemia
     Dosage: 10 MG, D9, D12, D18, D24
     Route: 037
     Dates: start: 20210126, end: 20210212

REACTIONS (1)
  - Anal inflammation [Recovered/Resolved]

NARRATIVE: CASE EVENT DATE: 20210222
